FAERS Safety Report 5565301-2 (Version None)
Quarter: 2007Q4

REPORT INFORMATION
  Report Type: 
  Country: None (occurrence: None)
  Receive Date: 20071218
  Receipt Date: 20021202
  Transmission Date: 20080405
  Serious: Yes (Death, Hospitalization, Disabling)
  Sender: FDA-Public Use
  Company Number: DE-ROCHE-324653

PATIENT
  Age: 61 Year
  Sex: Female
  Weight: 52 kg

DRUGS (4)
  1. XELODA [Suspect]
     Dosage: CYCLIC THERAPY OF TREATMENT ON DAYS 8-21.
     Route: 048
     Dates: start: 20020601, end: 20020723
  2. DURAGESIC-100 [Concomitant]
     Route: 061
  3. CAMPTO [Concomitant]
     Dosage: CYCLIC THERAPY GIVEN ON DAY ONE.
     Route: 042
     Dates: start: 20020601, end: 20020723
  4. FLUOROURACIL [Concomitant]
     Dates: start: 20020601, end: 20020723

REACTIONS (2)
  - DISEASE PROGRESSION [None]
  - VITH NERVE PARALYSIS [None]
